FAERS Safety Report 9406048 (Version 1)
Quarter: 2013Q3

REPORT INFORMATION
  Report Type: Spontaneous
  Country: AU (occurrence: AU)
  Receive Date: 20130717
  Receipt Date: 20130717
  Transmission Date: 20140515
  Serious: Yes (Hospitalization)
  Sender: FDA-Public Use
  Company Number: AU-009507513-1307AUS005144

PATIENT
  Age: 18 Year
  Sex: Female

DRUGS (2)
  1. DESLORATADINE [Suspect]
     Dosage: 335 MG, ONCE 67 TAB X 5 MG
     Route: 048
     Dates: start: 20130510
  2. IBUPROFEN [Suspect]
     Dosage: 6000 MILLIGRAM, ONCE, 30  DF X 200 MG
     Route: 048
     Dates: start: 20130510

REACTIONS (2)
  - Electrocardiogram QT prolonged [Recovered/Resolved]
  - Intentional overdose [Recovered/Resolved]
